FAERS Safety Report 5133715-0 (Version None)
Quarter: 2006Q4

REPORT INFORMATION
  Report Type: 
  Country: None (occurrence: None)
  Receive Date: 20061024
  Receipt Date: 20061016
  Transmission Date: 20070319
  Serious: Yes (Life-Threatening)
  Sender: FDA-Public Use
  Company Number: JP-ROCHE-467279

PATIENT
  Age: 66 Year
  Sex: Female

DRUGS (2)
  1. PANALDINE [Suspect]
     Indication: THROMBOSIS PROPHYLAXIS
     Dosage: INIDCATION ALSO REPORTED AS STENT PLACEMENT
     Route: 048
     Dates: start: 20060927, end: 20061003
  2. ASPIRIN [Concomitant]
     Indication: THROMBOSIS PROPHYLAXIS
     Route: 048

REACTIONS (6)
  - HEPATIC NECROSIS [None]
  - HYPOGLYCAEMIA [None]
  - LIVER DISORDER [None]
  - LOSS OF CONSCIOUSNESS [None]
  - SHOCK [None]
  - THROMBOTIC THROMBOCYTOPENIC PURPURA [None]
